FAERS Safety Report 17634446 (Version 2)
Quarter: 2020Q2

REPORT INFORMATION
  Report Type: Report from Study
  Country: US (occurrence: US)
  Receive Date: 20200406
  Receipt Date: 20200413
  Transmission Date: 20200713
  Serious: Yes (Death, Life-Threatening, Hospitalization)
  Sender: FDA-Public Use
  Company Number: US-PFIZER INC-2020137868

PATIENT
  Sex: Male
  Weight: 187 kg

DRUGS (10)
  1. MERCAPTOPURINE. [Suspect]
     Active Substance: MERCAPTOPURINE
     Indication: PRECURSOR B-LYMPHOBLASTIC LYMPHOMA
     Dosage: UNK
     Dates: end: 20191014
  2. DAUNORUBICIN [Suspect]
     Active Substance: DAUNORUBICIN
     Indication: PRECURSOR B-LYMPHOBLASTIC LYMPHOMA
     Dosage: UNK
     Dates: end: 20190614
  3. METHOTREXATE SODIUM. [Suspect]
     Active Substance: METHOTREXATE SODIUM
     Indication: PRECURSOR B-LYMPHOBLASTIC LYMPHOMA
     Dosage: TOTAL DOSE ADMINISTERED THIS COURSE: 725 MG
     Dates: end: 20191122
  4. ONCASPAR [Suspect]
     Active Substance: PEGASPARGASE
     Indication: PRECURSOR B-LYMPHOBLASTIC LYMPHOMA
     Dosage: TOTAL DOSE ADMINISTERED THIS COURSE: 3750 IU
     Dates: end: 20191113
  5. RITUXIMAB. [Suspect]
     Active Substance: RITUXIMAB
     Indication: PRECURSOR B-LYMPHOBLASTIC LYMPHOMA
     Dosage: TOTAL DOSE ADMINISTERED THIS COURSE: 2130MG
     Dates: end: 20191122
  6. DEXAMETHASONE. [Suspect]
     Active Substance: DEXAMETHASONE
     Indication: PRECURSOR B-LYMPHOBLASTIC LYMPHOMA
     Dosage: UNK
     Dates: end: 20191008
  7. CYCLOPHOSPHAMIDE. [Suspect]
     Active Substance: CYCLOPHOSPHAMIDE
     Indication: PRECURSOR B-LYMPHOBLASTIC LYMPHOMA
     Dosage: UNK
     Dates: end: 20191008
  8. INOTUZUMAB OZOGAMICIN [Suspect]
     Active Substance: INOTUZUMAB OZOGAMICIN
     Indication: PRECURSOR B-LYMPHOBLASTIC LYMPHOMA
     Dosage: UNK
     Dates: end: 20190814
  9. CYTARABINE. [Suspect]
     Active Substance: CYTARABINE
     Indication: PRECURSOR B-LYMPHOBLASTIC LYMPHOMA
     Dosage: UNK
     Dates: end: 20191018
  10. VINCRISTINE SULFATE. [Suspect]
     Active Substance: VINCRISTINE SULFATE
     Indication: PRECURSOR B-LYMPHOBLASTIC LYMPHOMA
     Dosage: TOTAL DOSE ADMINISTERED THIS COURSE: 6MG
     Dates: end: 20191206

REACTIONS (4)
  - Colitis [Unknown]
  - Acute kidney injury [Unknown]
  - Hepatic failure [Fatal]
  - Enterocolitis infectious [Unknown]

NARRATIVE: CASE EVENT DATE: 20191211
